FAERS Safety Report 8921883 (Version 1)
Quarter: 2012Q4

REPORT INFORMATION
  Report Type: 
  Country: US (occurrence: US)
  Receive Date: 20121121
  Receipt Date: 20121121
  Transmission Date: 20130627
  Serious: No
  Sender: FDA-Public Use
  Company Number: US-ASTRAZENECA-2012SE84483

PATIENT
  Age: 48 Year
  Sex: Male
  Weight: 74.4 kg

DRUGS (2)
  1. SYMBICORT [Suspect]
     Indication: ASTHMA
     Dosage: 160/4.5, 2 puffs, BID
     Route: 055
     Dates: start: 200805
  2. SYMBICORT [Suspect]
     Indication: CHRONIC OBSTRUCTIVE PULMONARY DISEASE
     Dosage: 160/4.5, 2 puffs, BID
     Route: 055
     Dates: start: 200805

REACTIONS (4)
  - Visual impairment [Unknown]
  - Halo vision [Unknown]
  - Migraine with aura [Unknown]
  - Sleep disorder [Unknown]
